FAERS Safety Report 5958842-7 (Version None)
Quarter: 2008Q4

REPORT INFORMATION
  Report Type: 
  Country: None (occurrence: None)
  Receive Date: 20081117
  Receipt Date: 20081103
  Transmission Date: 20090506
  Serious: Yes (Hospitalization)
  Sender: FDA-Public Use
  Company Number: 310010M08FRA

PATIENT
  Age: 35 Year
  Sex: Female

DRUGS (9)
  1. GONAL-F [Suspect]
     Indication: IN VITRO FERTILISATION
     Dosage: SEE IMAGE
     Route: 058
  2. GONAL-F [Suspect]
     Indication: IN VITRO FERTILISATION
     Dosage: SEE IMAGE
     Route: 058
  3. GONAL-F [Suspect]
     Indication: IN VITRO FERTILISATION
     Dosage: SEE IMAGE
     Route: 058
  4. GONAL-F [Suspect]
     Indication: IN VITRO FERTILISATION
     Dosage: SEE IMAGE
     Route: 058
  5. GONAL-F [Suspect]
     Indication: IN VITRO FERTILISATION
     Dosage: SEE IMAGE
     Route: 058
  6. OVITRELLE (CHORIOGONADOTROPIN ALFA) [Suspect]
     Indication: IN VITRO FERTILISATION
     Dosage: 250 MCG, ONCE, SUBCUTANEOUS
     Route: 058
     Dates: start: 20080430, end: 20080430
  7. OVITRELLE (CHORIOGONADOTROPIN ALFA) [Suspect]
     Indication: OVULATION INDUCTION
     Dosage: 250 MCG, ONCE, SUBCUTANEOUS
     Route: 058
     Dates: start: 20080430, end: 20080430
  8. UTROGESTAN (PROGESTERONE) [Suspect]
  9. LEUPRORELIN [Concomitant]

REACTIONS (6)
  - CEREBRAL ARTERY THROMBOSIS [None]
  - DRUG EXPOSURE DURING PREGNANCY [None]
  - FALL [None]
  - ISCHAEMIC STROKE [None]
  - MALAISE [None]
  - WALKING AID USER [None]
